FAERS Safety Report 16307311 (Version 2)
Quarter: 2019Q2

REPORT INFORMATION
  Report Type: Spontaneous
  Country: DE (occurrence: DE)
  Receive Date: 20190514
  Receipt Date: 20190529
  Transmission Date: 20190711
  Serious: Yes (Other)
  Sender: FDA-Public Use
  Company Number: DE-SA-2019SA124449

PATIENT
  Age: 38 Year
  Sex: Female
  Weight: 55 kg

DRUGS (1)
  1. TOUJEO [Suspect]
     Active Substance: INSULIN GLARGINE
     Dosage: 8 IE
     Route: 058
     Dates: start: 20160415, end: 20160418

REACTIONS (10)
  - Swelling face [Recovered/Resolved with Sequelae]
  - Weight decreased [Unknown]
  - Laryngitis [Recovered/Resolved with Sequelae]
  - Respiratory tract infection [Unknown]
  - Dyspnoea [Recovered/Resolved with Sequelae]
  - Depressed mood [Recovered/Resolved with Sequelae]
  - Breast mass [Recovered/Resolved with Sequelae]
  - Asthenia [Unknown]
  - Breast cancer [Recovered/Resolved with Sequelae]
  - Asthma [Recovered/Resolved with Sequelae]

NARRATIVE: CASE EVENT DATE: 20160429
